FAERS Safety Report 14303374 (Version 2)
Quarter: 2018Q3

REPORT INFORMATION
  Report Type: Spontaneous
  Country: JP (occurrence: JP)
  Receive Date: 20171219
  Receipt Date: 20180807
  Transmission Date: 20181010
  Serious: Yes (Other)
  Sender: FDA-Public Use
  Company Number: JP-OTSUKA-2016_008716

PATIENT
  Age: 62 Year
  Sex: Male

DRUGS (2)
  1. ABILIFY [Suspect]
     Active Substance: ARIPIPRAZOLE
     Indication: THERAPY CHANGE
     Dosage: 30 MG, QD
     Route: 048
     Dates: start: 20160201, end: 20160430
  2. WYPAX [Concomitant]
     Active Substance: LORAZEPAM
     Indication: PRODUCT USED FOR UNKNOWN INDICATION
     Dosage: 1.5 MG, QD
     Route: 048
     Dates: start: 20150302, end: 20160430

REACTIONS (4)
  - Parkinsonian gait [Unknown]
  - Blood creatine phosphokinase increased [Recovered/Resolved]
  - Off label use [Unknown]
  - Joint ankylosis [Unknown]

NARRATIVE: CASE EVENT DATE: 20160429
